FAERS Safety Report 8006202-X (Version None)
Quarter: 2011Q4

REPORT INFORMATION
  Report Type: 
  Country: None (occurrence: None)
  Receive Date: 20111226
  Receipt Date: 20111221
  Transmission Date: 20120403
  Serious: Yes (Death)
  Sender: FDA-Public Use
  Company Number: PHHY2011AR111498

PATIENT
  Sex: Male

DRUGS (2)
  1. STALEVO 100 [Suspect]
     Indication: MUSCULOSKELETAL STIFFNESS
     Dosage: 100MG, 1.5 TABLETS DAILY
     Dates: start: 20110501
  2. STALEVO 100 [Suspect]
     Dosage: 200 MG, UNK

REACTIONS (1)
  - PANCREATITIS [None]
